FAERS Safety Report 25394290 (Version 3)
Quarter: 2025Q3

REPORT INFORMATION
  Report Type: Report from Study
  Country: EU (occurrence: EU)
  Receive Date: 20250604
  Receipt Date: 20250813
  Transmission Date: 20251021
  Serious: Yes (Other)
  Sender: TAKEDA
  Company Number: EU-TAKEDA-2025TUS051297

PATIENT
  Sex: Male

DRUGS (14)
  1. ADYNOVATE [Suspect]
     Active Substance: ANTIHEMOPHILIC FACTOR, HUMAN RECOMBINANT
     Indication: Factor VIII deficiency
     Dosage: 30 MILLIGRAM, Q72H
     Dates: start: 20210923
  2. ADYNOVATE [Suspect]
     Active Substance: ANTIHEMOPHILIC FACTOR, HUMAN RECOMBINANT
  3. ADYNOVATE [Suspect]
     Active Substance: ANTIHEMOPHILIC FACTOR, HUMAN RECOMBINANT
  4. LERCANIDIPINE [Concomitant]
     Active Substance: LERCANIDIPINE
     Indication: Hypertension
     Dosage: 10 MILLIGRAM, BID
  5. RAMIPRIL [Concomitant]
     Active Substance: RAMIPRIL
     Indication: Hypertension
     Dosage: 5 MILLIGRAM, QD
  6. NEBIVOLOL [Concomitant]
     Active Substance: NEBIVOLOL
     Indication: Hypertension
     Dosage: 2.5 MILLIGRAM, BID
  7. TAMSULOSIN [Concomitant]
     Active Substance: TAMSULOSIN
     Indication: Benign prostatic hyperplasia
     Dosage: 0.4 MILLIGRAM, QD
     Dates: start: 2017
  8. ETORICOXIB [Concomitant]
     Active Substance: ETORICOXIB
     Indication: Arthropathy
     Dosage: 60 MILLIGRAM, QOD
     Dates: start: 20210317
  9. ETORICOXIB [Concomitant]
     Active Substance: ETORICOXIB
     Dosage: 30 MILLIGRAM, QOD
     Dates: start: 20210317
  10. PANTOPRAZOLE SODIUM [Concomitant]
     Active Substance: PANTOPRAZOLE SODIUM
     Indication: Prophylaxis
     Dosage: 40 MILLIGRAM, Q4WEEKS
     Dates: start: 202103
  11. HYDROCHLOROTHIAZIDE [Concomitant]
     Active Substance: HYDROCHLOROTHIAZIDE
     Indication: Hypertension
     Dosage: 25 MILLIGRAM, QD
  12. CARBIDOPA\LEVODOPA [Concomitant]
     Active Substance: CARBIDOPA\LEVODOPA
     Indication: Parkinson^s disease
     Dosage: UNK UNK, TID
     Dates: start: 20220518
  13. UNSPECIFIED INGREDIENT [Concomitant]
     Active Substance: UNSPECIFIED INGREDIENT
     Indication: Blood cholesterol abnormal
     Dosage: UNK UNK, QD
     Dates: start: 20240716
  14. ROPINIROLE [Concomitant]
     Active Substance: ROPINIROLE
     Indication: Parkinsonism

REACTIONS (1)
  - Haemophilic arthropathy [Recovered/Resolved]

NARRATIVE: CASE EVENT DATE: 20240901
